FAERS Safety Report 18001364 (Version 1)
Quarter: 2020Q3

REPORT INFORMATION
  Report Type: Spontaneous
  Country: FR (occurrence: FR)
  Receive Date: 20200709
  Receipt Date: 20200709
  Transmission Date: 20201103
  Serious: Yes (Hospitalization, Other)
  Sender: FDA-Public Use
  Company Number: FR-MYLANLABS-2020M1061355

PATIENT
  Age: 32 Year
  Sex: Male

DRUGS (3)
  1. PREGABALIN. [Suspect]
     Active Substance: PREGABALIN
     Indication: PRODUCT USED FOR UNKNOWN INDICATION
     Dosage: QUANTIT? CONSOMM?E NON PR?CIS?E
     Dates: start: 20200216
  2. HEROIN [Suspect]
     Active Substance: DIAMORPHINE
     Indication: PRODUCT USED FOR UNKNOWN INDICATION
     Dosage: QUANTIT? CONSOMM?E NON PR?CIS?E
     Dates: start: 20200216
  3. ALCOOL [Suspect]
     Active Substance: ALCOHOL
     Indication: PRODUCT USED FOR UNKNOWN INDICATION
     Dosage: QUANTIT? CONSOMM?E NON PR?CIS?E
     Route: 048

REACTIONS (6)
  - Oxygen saturation decreased [Recovered/Resolved]
  - Drug abuse [Unknown]
  - Drug dependence [Unknown]
  - Coma [Recovered/Resolved]
  - Intentional product misuse [Unknown]
  - Bradypnoea [Recovered/Resolved]

NARRATIVE: CASE EVENT DATE: 20200216
